FAERS Safety Report 6587337-5 (Version None)
Quarter: 2010Q1

REPORT INFORMATION
  Report Type: 
  Country: None (occurrence: None)
  Receive Date: 20100217
  Receipt Date: 20090515
  Transmission Date: 20100710
  Serious: No
  Sender: FDA-Public Use
  Company Number: US-ALLERGAN-0906770US

PATIENT
  Sex: Female

DRUGS (5)
  1. BOTOX COSMETIC [Suspect]
     Indication: SKIN WRINKLING
     Dosage: 51.7 UNITS, SINGLE
     Route: 030
     Dates: start: 20090201, end: 20090201
  2. BOTOX COSMETIC [Suspect]
     Route: 030
     Dates: start: 20060401
  3. ZOLOFT [Concomitant]
  4. WELLBUTRIN [Concomitant]
  5. LIPITOR [Concomitant]

REACTIONS (1)
  - SYSTEMIC LUPUS ERYTHEMATOSUS [None]
